FAERS Safety Report 10929737 (Version 2)
Quarter: 2015Q3

REPORT INFORMATION
  Report Type: Spontaneous
  Country: JP (occurrence: JP)
  Receive Date: 20150319
  Receipt Date: 20150724
  Transmission Date: 20151125
  Serious: Yes (Death, Life-Threatening, Other)
  Sender: FDA-Public Use
  Company Number: JP-MALLINCKRODT-T201501674

PATIENT
  Age: 67 Year
  Sex: Male
  Weight: 44 kg

DRUGS (14)
  1. METHADONE [Suspect]
     Active Substance: METHADONE HYDROCHLORIDE
     Dosage: 10 MG (20 MG DAILY DOSE)
     Route: 048
     Dates: start: 20150228, end: 20150316
  2. METHADONE [Suspect]
     Active Substance: METHADONE HYDROCHLORIDE
     Indication: CANCER PAIN
     Dosage: 10 MG (30 MG DAILY DOSE)
     Route: 048
     Dates: start: 20150225, end: 20150226
  3. LYRICA [Concomitant]
     Active Substance: PREGABALIN
     Dosage: 150 MG
     Route: 048
     Dates: end: 20150320
  4. ETIZOLAM [Concomitant]
     Active Substance: ETIZOLAM
     Dosage: 1 MG
     Route: 048
     Dates: end: 20150320
  5. METHADONE [Suspect]
     Active Substance: METHADONE HYDROCHLORIDE
     Dosage: 10 MG (10 MG DAILY DOSE)
     Route: 048
     Dates: start: 20150227, end: 20150227
  6. BROMHEXINE HYDROCHLORIDE [Concomitant]
     Active Substance: BROMHEXINE HYDROCHLORIDE
     Dosage: 8 ML
     Route: 055
     Dates: end: 20150320
  7. MAGNESIUM OXIDE. [Concomitant]
     Active Substance: MAGNESIUM OXIDE
     Dosage: 1 G
     Route: 048
     Dates: end: 20150320
  8. ASPARA [Concomitant]
     Active Substance: CALCIUM ASPARTATE
     Dosage: 400 MG
     Route: 048
     Dates: end: 20150320
  9. METHADONE [Suspect]
     Active Substance: METHADONE HYDROCHLORIDE
     Dosage: 10 MG (10 MG DAILY DOSE)
     Route: 048
     Dates: start: 20150317, end: 20150318
  10. METHADONE [Suspect]
     Active Substance: METHADONE HYDROCHLORIDE
     Dosage: 10 MG (20 MG DAILY DOSE)
     Route: 048
     Dates: start: 20150319, end: 20150319
  11. ETODOLAC. [Concomitant]
     Active Substance: ETODOLAC
     Dosage: 400 MG
     Route: 048
     Dates: end: 20150320
  12. BENZALIN [Concomitant]
     Active Substance: NITRAZEPAM
     Dosage: 1 MG
     Route: 048
     Dates: end: 20150320
  13. VENETLIN [Concomitant]
     Active Substance: ALBUTEROL SULFATE
     Dosage: 2 ML
     Route: 055
     Dates: end: 20150320
  14. OXINORM [Suspect]
     Active Substance: OXYCODONE HYDROCHLORIDE
     Indication: ANALGESIC THERAPY
     Dosage: 10 MG, PRN
     Route: 048
     Dates: start: 20150224

REACTIONS (4)
  - Benign prostatic hyperplasia [Not Recovered/Not Resolved]
  - Somnolence [Not Recovered/Not Resolved]
  - Oesophagobronchial fistula [Fatal]
  - Lung neoplasm malignant [Fatal]

NARRATIVE: CASE EVENT DATE: 20150227
